FAERS Safety Report 8008686-X (Version None)
Quarter: 2011Q4

REPORT INFORMATION
  Report Type: 
  Country: None (occurrence: None)
  Receive Date: 20111227
  Receipt Date: 20111215
  Transmission Date: 20120403
  Serious: Yes (Death)
  Sender: FDA-Public Use
  Company Number: FR-MERCK-1112USA02544

PATIENT
  Age: 34 Year
  Sex: Female

DRUGS (10)
  1. VANCOMYCIN [Suspect]
     Route: 065
     Dates: start: 20110930, end: 20111007
  2. LASIX [Suspect]
     Route: 065
     Dates: start: 20111004, end: 20111007
  3. PRIMAXIN [Suspect]
     Route: 065
     Dates: start: 20110927, end: 20111008
  4. ACETAMINOPHEN [Suspect]
     Route: 065
     Dates: start: 20111003, end: 20111007
  5. CATAPRES [Suspect]
     Route: 065
     Dates: start: 20110927, end: 20111007
  6. CIPROFLOXACIN HCL [Suspect]
     Route: 065
     Dates: start: 20110927, end: 20111007
  7. ULTIVA [Suspect]
     Route: 065
     Dates: start: 20110929, end: 20111008
  8. FRESUBIN [Suspect]
     Route: 065
     Dates: start: 20110917, end: 20111008
  9. CALCIPARINE [Suspect]
     Route: 058
     Dates: start: 20110922, end: 20111006
  10. NOZINAN [Suspect]
     Route: 065
     Dates: start: 20110927, end: 20111007

REACTIONS (2)
  - COMA [None]
  - CEREBRAL HAEMATOMA [None]
